FAERS Safety Report 4474508-7 (Version None)
Quarter: 2004Q4

REPORT INFORMATION
  Report Type: 
  Country: None (occurrence: None)
  Receive Date: 20041014
  Receipt Date: 20041012
  Transmission Date: 20050328
  Serious: Yes (Death)
  Sender: FDA-Public Use
  Company Number: PHBS2004JP13537

PATIENT
  Age: 82 Year

DRUGS (1)
  1. AREDIA [Suspect]
     Indication: METASTASES TO BONE
     Dosage: UNK, ONCE/SINGLE
     Route: 065
     Dates: start: 20041005, end: 20041005

REACTIONS (1)
  - DYSPNOEA [None]
